FAERS Safety Report 6088506-3 (Version None)
Quarter: 2009Q1

REPORT INFORMATION
  Report Type: 
  Country: None (occurrence: None)
  Receive Date: 20090219
  Receipt Date: 20090203
  Transmission Date: 20090719
  Serious: Yes (Other)
  Sender: FDA-Public Use
  Company Number: 000377

PATIENT
  Age: 44 Year
  Sex: Female

DRUGS (3)
  1. NIFEDIPINE [Suspect]
     Indication: TOCOLYSIS
     Dosage: (10 MG 1X/15 MINUTES SUBLINGUAL), (ORAL)
  2. NIFEDIPINE [Suspect]
     Indication: TOCOLYSIS
  3. ATOSIBAN (ATOSIBAN) [Suspect]
     Indication: TOCOLYSIS
     Dosage: (INTRAVENOUS))
     Route: 042

REACTIONS (7)
  - DIASTOLIC DYSFUNCTION [None]
  - DRUG EXPOSURE DURING PREGNANCY [None]
  - HEART RATE INCREASED [None]
  - HYPOXIA [None]
  - PULMONARY OEDEMA [None]
  - RESPIRATORY FAILURE [None]
  - SINUS TACHYCARDIA [None]
